FAERS Safety Report 5128658-2 (Version None)
Quarter: 2006Q4

REPORT INFORMATION
  Report Type: 
  Country: None (occurrence: None)
  Receive Date: 20061011
  Receipt Date: 20060927
  Transmission Date: 20070319
  Serious: Yes (Hospitalization)
  Sender: FDA-Public Use
  Company Number: 230392

PATIENT
  Age: 56 Year
  Sex: Female
  Weight: 54 kg

DRUGS (3)
  1. AVASTIN [Suspect]
     Indication: NON-SMALL CELL LUNG CANCER
     Dosage: 810 MG, Q3W, INTRAVENOUS
     Route: 042
     Dates: start: 20060509
  2. CARBOPLATIN [Concomitant]
  3. ALIMTA [Suspect]

REACTIONS (1)
  - DIVERTICULITIS [None]
